FAERS Safety Report 9323968 (Version 1)
Quarter: 2013Q2

REPORT INFORMATION
  Report Type: Not Available
  Country: AT (occurrence: AT)
  Receive Date: 20130603
  Receipt Date: 20130603
  Transmission Date: 20140414
  Serious: Yes (Hospitalization)
  Sender: FDA-Public Use
  Company Number: AT-NAPPMUNDI-DEU-2013-0011639

PATIENT
  Age: 54 Year
  Sex: Female

DRUGS (5)
  1. HYDAL RETARD KAPSELN [Suspect]
     Indication: FRACTURE PAIN
     Dosage: 48 MG, UNK
     Route: 048
  2. SIMPONI [Concomitant]
  3. SERACTIL [Concomitant]
  4. ACLASTA [Concomitant]
  5. SELOKEN                            /00376902/ [Concomitant]

REACTIONS (1)
  - Tibia fracture [Recovered/Resolved]
